FAERS Safety Report 9682590 (Version 1)
Quarter: 2013Q4

REPORT INFORMATION
  Report Type: Spontaneous
  Country: GB (occurrence: GB)
  Receive Date: 20131017
  Receipt Date: 20131017
  Transmission Date: 20140711
  Serious: Yes (Other)
  Sender: FDA-Public Use
  Company Number: GB-DRREDDYS-GER/UKI/13/0034869

PATIENT
  Age: 35 Year
  Sex: Male
  Weight: 106 kg

DRUGS (9)
  1. FLUOXETINE [Suspect]
     Indication: DEPRESSED MOOD
     Route: 048
     Dates: end: 20130326
  2. CLOZARIL [Suspect]
     Indication: PRODUCT USED FOR UNKNOWN INDICATION
     Route: 048
     Dates: start: 20130308
  3. CLOZARIL [Suspect]
     Dates: start: 20130322
  4. HYOSCINE [Concomitant]
     Indication: PRODUCT USED FOR UNKNOWN INDICATION
  5. MAALOX [Concomitant]
     Indication: PRODUCT USED FOR UNKNOWN INDICATION
  6. QUETIAPINE [Concomitant]
     Indication: PRODUCT USED FOR UNKNOWN INDICATION
  7. SIMVASTATIN [Concomitant]
     Indication: PRODUCT USED FOR UNKNOWN INDICATION
  8. SODIUM VALPROATE [Concomitant]
     Indication: PRODUCT USED FOR UNKNOWN INDICATION
  9. ZOPICLONE [Concomitant]
     Indication: PRODUCT USED FOR UNKNOWN INDICATION

REACTIONS (2)
  - Antipsychotic drug level increased [Unknown]
  - Salivary hypersecretion [Unknown]
